FAERS Safety Report 6634129-4 (Version None)
Quarter: 2010Q1

REPORT INFORMATION
  Report Type: 
  Country: None (occurrence: None)
  Receive Date: 20100315
  Receipt Date: 20100303
  Transmission Date: 20100710
  Serious: Yes (Other)
  Sender: FDA-Public Use
  Company Number: GB-ELI_LILLY_AND_COMPANY-GB201003000922

PATIENT
  Age: 30 Year
  Sex: Male

DRUGS (3)
  1. OLANZAPINE [Suspect]
     Indication: PERSONALITY DISORDER
     Dosage: 10 MG, UNK
     Route: 048
     Dates: start: 20090309, end: 20090101
  2. OLANZAPINE [Suspect]
     Dosage: UNK, UNKNOWN
     Route: 065
  3. SERTRALINE [Concomitant]
     Indication: OBSESSIVE-COMPULSIVE DISORDER
     Dosage: 100 MG, UNK
     Route: 048
     Dates: start: 20100118, end: 20100127

REACTIONS (4)
  - DRUG INTERACTION [None]
  - HEPATITIS [None]
  - JAUNDICE [None]
  - OFF LABEL USE [None]
